FAERS Safety Report 9618905 (Version 3)
Quarter: 2013Q4

REPORT INFORMATION
  Report Type: Report from Study
  Country: US (occurrence: US)
  Receive Date: 20131014
  Receipt Date: 20131015
  Transmission Date: 20140711
  Serious: Yes (Hospitalization)
  Sender: FDA-Public Use
  Company Number: US-ASTRAZENECA-2013SE69656

PATIENT
  Age: 30217 Day
  Sex: Male
  Weight: 94.8 kg

DRUGS (11)
  1. MORPHINE [Suspect]
     Indication: ARTHRALGIA
     Route: 058
     Dates: start: 20130808
  2. FENTANYL [Suspect]
     Indication: ARTHRALGIA
     Route: 062
     Dates: start: 20130808
  3. IRON SULFATE [Suspect]
     Indication: ANAEMIA
     Route: 048
     Dates: start: 20130808
  4. TYLENOL [Suspect]
     Indication: ARTHRALGIA
     Route: 048
     Dates: start: 20130808
  5. ALVIMOPAN [Suspect]
     Indication: PAIN
     Route: 048
     Dates: start: 20130808
  6. LOVENOX [Suspect]
     Indication: THROMBOSIS PROPHYLAXIS
     Route: 048
     Dates: start: 20130808
  7. NIACIN [Suspect]
     Indication: BLOOD CHOLESTEROL INCREASED
     Route: 048
     Dates: start: 20130808
  8. AZD6140 CODE NOT BROKEN [Suspect]
     Indication: PERIPHERAL ARTERIAL OCCLUSIVE DISEASE
     Route: 048
     Dates: start: 20130603, end: 20130604
  9. CARVEDILOL [Concomitant]
     Indication: HYPERTENSION
     Route: 048
     Dates: start: 19940101
  10. LASIX [Concomitant]
     Indication: OEDEMA PERIPHERAL
     Route: 048
     Dates: start: 19940101
  11. HUMALOG [Concomitant]
     Indication: TYPE 2 DIABETES MELLITUS
     Route: 058
     Dates: start: 19940101

REACTIONS (2)
  - Adenocarcinoma of colon [Recovering/Resolving]
  - Arthritis bacterial [Recovering/Resolving]
